FAERS Safety Report 6172840-2 (Version None)
Quarter: 2009Q2

REPORT INFORMATION
  Report Type: 
  Country: None (occurrence: None)
  Receive Date: 20090430
  Receipt Date: 20090417
  Transmission Date: 20091009
  Serious: Yes (Other)
  Sender: FDA-Public Use
  Company Number: US-TYCO HEALTHCARE/MALLINCKRODT-T200900933

PATIENT
  Sex: Female

DRUGS (4)
  1. OPTIMARK [Suspect]
     Indication: NUCLEAR MAGNETIC RESONANCE IMAGING BRAIN
     Dosage: UNK
     Dates: start: 20061023, end: 20061023
  2. MAGNEVIST [Suspect]
     Indication: NUCLEAR MAGNETIC RESONANCE IMAGING
     Dosage: UNK
     Dates: start: 20050727, end: 20050727
  3. MAGNEVIST [Suspect]
     Dosage: UNK
     Dates: start: 20050727, end: 20050727
  4. MAGNEVIST [Suspect]
     Dosage: UNK
     Dates: start: 20050810, end: 20050810

REACTIONS (5)
  - AORTIC ARTERIOSCLEROSIS [None]
  - CEREBRAL ISCHAEMIA [None]
  - NEPHROGENIC SYSTEMIC FIBROSIS [None]
  - RENAL ARTERY HYPERPLASIA [None]
  - RENAL ARTERY THROMBOSIS [None]
